FAERS Safety Report 4548598-7 (Version None)
Quarter: 2005Q1

REPORT INFORMATION
  Report Type: 
  Country: None (occurrence: None)
  Receive Date: 20050105
  Receipt Date: 20050105
  Transmission Date: 20050727
  Serious: Yes (Disabling)
  Sender: FDA-Public Use
  Company Number: None

PATIENT
  Age: 61 Year
  Sex: Female
  Weight: 45.3597 kg

DRUGS (1)
  1. REMERON [Suspect]
     Indication: DEPRESSION
     Dosage: ONE PO Q HS
     Route: 048
     Dates: start: 20030801, end: 20041201

REACTIONS (5)
  - AGITATION [None]
  - DEPRESSION [None]
  - HEPATIC ENZYME INCREASED [None]
  - MOUTH ULCERATION [None]
  - SUICIDAL IDEATION [None]
